FAERS Safety Report 9799559 (Version 1)
Quarter: 2014Q1

REPORT INFORMATION
  Report Type: Spontaneous
  Country: US (occurrence: US)
  Receive Date: 20140106
  Receipt Date: 20140106
  Transmission Date: 20141002
  Serious: No
  Sender: FDA-Public Use
  Company Number: US-GILEAD-2010-0030264

PATIENT
  Age: 64 Year
  Sex: Female

DRUGS (11)
  1. NORVASC [Concomitant]
  2. PRILOSEC [Concomitant]
  3. WARFARIN [Concomitant]
  4. HCTZ [Concomitant]
  5. TORSEMIDE [Concomitant]
  6. POTASSIUM [Concomitant]
  7. LAMICTAL [Concomitant]
  8. VIAGRA [Concomitant]
  9. LETAIRIS [Suspect]
     Indication: PULMONARY ARTERIAL HYPERTENSION
     Route: 048
     Dates: start: 20090724
  10. ADCIRCA [Concomitant]
  11. ALDACTONE [Concomitant]

REACTIONS (1)
  - Arthralgia [Unknown]
